FAERS Safety Report 4542917-3 (Version None)
Quarter: 2004Q4

REPORT INFORMATION
  Report Type: 
  Country: None (occurrence: None)
  Receive Date: 20041229
  Receipt Date: 20041216
  Transmission Date: 20050328
  Serious: Yes (Hospitalization)
  Sender: FDA-Public Use
  Company Number: 2004113960

PATIENT
  Age: 73 Year
  Sex: Female
  Weight: 83.9154 kg

DRUGS (5)
  1. XANAX [Suspect]
     Indication: ANXIETY
     Dosage: 1 MG (0.25 MG, 1 IN 4 D), ORAL
     Route: 048
     Dates: start: 20010101
  2. PHENYTOIN SODIUM [Concomitant]
  3. ANTIHYPERTENSIVES (ANTIHYPERTENSIVES) [Concomitant]
  4. MINOXIDIL [Concomitant]
  5. CLONIDINE [Concomitant]

REACTIONS (4)
  - DRUG WITHDRAWAL SYNDROME [None]
  - FEELING ABNORMAL [None]
  - HIP FRACTURE [None]
  - INSOMNIA [None]
